FAERS Safety Report 25726029 (Version 2)
Quarter: 2025Q3

REPORT INFORMATION
  Report Type: Report from Study
  Country: JP (occurrence: JP)
  Receive Date: 20250826
  Receipt Date: 20250829
  Transmission Date: 20251020
  Serious: Yes (Hospitalization, Other)
  Sender: UCB
  Company Number: JP-UCBJ-CD202511028UCBPHAPROD

PATIENT
  Age: 67 Year
  Sex: Female

DRUGS (1)
  1. ZILUCOPLAN [Suspect]
     Active Substance: ZILUCOPLAN
     Indication: Myasthenia gravis
     Route: 058
     Dates: start: 20250606, end: 202508

REACTIONS (1)
  - Thymoma [Unknown]
